FAERS Safety Report 6081237-5 (Version None)
Quarter: 2009Q1

REPORT INFORMATION
  Report Type: 
  Country: None (occurrence: None)
  Receive Date: 20090213
  Receipt Date: 20090128
  Transmission Date: 20090719
  Serious: Yes (Congenital Anomaly)
  Sender: FDA-Public Use
  Company Number: ADE2009-0452

PATIENT
  Sex: Female

DRUGS (6)
  1. ZIDOVUDINE [Suspect]
     Dosage: IV
     Route: 042
     Dates: start: 20081109, end: 20081109
  2. PREZISTA [Concomitant]
  3. RITONAVIR [Concomitant]
  4. KALETRA [Concomitant]
  5. COMBIVIR [Concomitant]
  6. TRUVADA [Concomitant]

REACTIONS (2)
  - DRUG EXPOSURE DURING PREGNANCY [None]
  - PREMATURE LABOUR [None]
